FAERS Safety Report 5196112-8 (Version None)
Quarter: 2007Q1

REPORT INFORMATION
  Report Type: 
  Country: None (occurrence: None)
  Receive Date: 20070102
  Receipt Date: 20061219
  Transmission Date: 20070707
  Serious: Yes (Death)
  Sender: FDA-Public Use
  Company Number: US-ELI_LILLY_AND_COMPANY-US200610001262

PATIENT
  Age: 92 Year
  Sex: Female
  Weight: 51 kg

DRUGS (3)
  1. ENOXAPARIN SODIUM [Concomitant]
     Indication: THROMBOSIS PROPHYLAXIS
     Dosage: 40 MG, UNK
     Dates: start: 20061004, end: 20061004
  2. ASPIRIN [Concomitant]
     Dosage: 81 MG, DAILY (1/D)
     Route: 051
  3. XIGRIS [Suspect]
     Indication: SEPSIS
     Dosage: 24 D/F, UNK
     Route: 042
     Dates: start: 20061003, end: 20061006

REACTIONS (1)
  - HAEMORRHAGE [None]
